FAERS Safety Report 6829768-1 (Version None)
Quarter: 2010Q3

REPORT INFORMATION
  Report Type: 
  Country: None (occurrence: None)
  Receive Date: 20100709
  Receipt Date: 20080502
  Transmission Date: 20110219
  Serious: No
  Sender: FDA-Public Use
  Company Number: US-PFIZER INC-2007007244

PATIENT
  Sex: Female
  Weight: 72.57 kg

DRUGS (7)
  1. CHANTIX [Suspect]
     Indication: SMOKING CESSATION THERAPY
     Dates: start: 20070112, end: 20080424
  2. ATENOLOL [Concomitant]
  3. DEPAKOTE [Concomitant]
     Indication: BIPOLAR DISORDER
  4. WELLBUTRIN [Concomitant]
  5. AMBIEN [Concomitant]
  6. PREMARIN [Concomitant]
  7. NICOTINE [Concomitant]

REACTIONS (3)
  - ANXIETY [None]
  - DRUG INEFFECTIVE [None]
  - FEELING ABNORMAL [None]
